FAERS Safety Report 7678600-5 (Version None)
Quarter: 2011Q3

REPORT INFORMATION
  Report Type: 
  Country: None (occurrence: None)
  Receive Date: 20110811
  Receipt Date: 20110808
  Transmission Date: 20111222
  Serious: Yes (Other)
  Sender: FDA-Public Use
  Company Number: GB-SANOFI-AVENTIS-2011SA036484

PATIENT
  Age: 57 Year
  Sex: Female

DRUGS (8)
  1. LOVASTATIN [Concomitant]
     Dates: start: 20101221
  2. TUSSIONEX [Concomitant]
     Dates: start: 20100401
  3. BUDESONIDE/FORMOTEROL [Concomitant]
     Dates: start: 20100722
  4. AMLODIPINE BESYLATE [Concomitant]
     Dates: start: 20110304, end: 20110405
  5. ALL OTHER THERAPEUTIC PRODUCTS [Suspect]
     Route: 058
     Dates: start: 20100401, end: 20110324
  6. LISINOPRIL [Concomitant]
     Dates: start: 20101221
  7. INSULIN GLARGINE [Suspect]
     Indication: TYPE 2 DIABETES MELLITUS
     Route: 058
     Dates: start: 20090717
  8. CARISOPRODOL [Concomitant]
     Dates: start: 20100930

REACTIONS (5)
  - HEADACHE [None]
  - ANGLE CLOSURE GLAUCOMA [None]
  - SWELLING [None]
  - VISION BLURRED [None]
  - EYE PAIN [None]
